FAERS Safety Report 5063696-X (Version None)
Quarter: 2006Q3

REPORT INFORMATION
  Report Type: 
  Country: None (occurrence: None)
  Receive Date: 20060724
  Receipt Date: 20060704
  Transmission Date: 20061208
  Serious: Yes (Death, Hospitalization)
  Sender: FDA-Public Use
  Company Number: 214225

PATIENT
  Age: 55 Year
  Sex: Female
  Weight: 52 kg

DRUGS (8)
  1. AVASTIN [Suspect]
     Indication: COLORECTAL CANCER METASTATIC
     Dosage: 260 MG, Q2W, INTRAVENOUS
     Route: 042
     Dates: start: 20050209, end: 20050420
  2. OXYCODONE HCL [Concomitant]
  3. DURAGESIC-100 [Concomitant]
  4. SALURES (BENDROFLUMETHIAZIDE) [Concomitant]
  5. NORVASC [Concomitant]
  6. PREDNISOLONE [Concomitant]
  7. PANODIL (ACETAMINOPHEN [Concomitant]
  8. NITRAZEPAM [Concomitant]

REACTIONS (4)
  - CARDIAC ARREST [None]
  - CONDITION AGGRAVATED [None]
  - GASTROINTESTINAL HAEMORRHAGE [None]
  - PAIN [None]
